FAERS Safety Report 10025277 (Version 1)
Quarter: 2014Q1

REPORT INFORMATION
  Report Type: Spontaneous
  Country: US (occurrence: US)
  Receive Date: 20140320
  Receipt Date: 20140320
  Transmission Date: 20141002
  Serious: Yes (Hospitalization)
  Sender: FDA-Public Use
  Company Number: US-GLAXOSMITHKLINE-A1064533A

PATIENT
  Age: 49 Year
  Sex: Male

DRUGS (3)
  1. VENTOLIN [Suspect]
     Indication: ASTHMA
     Dosage: 2PUFF TWICE PER DAY
     Route: 055
     Dates: start: 2001
  2. PROTONIX [Concomitant]
  3. ATIVAN [Concomitant]

REACTIONS (8)
  - Cholecystitis infective [Unknown]
  - Carpal tunnel decompression [Unknown]
  - Joint injury [Unknown]
  - Head injury [Unknown]
  - Vertigo [Unknown]
  - Fall [Unknown]
  - Contusion [Unknown]
  - Cellulitis [Unknown]
